FAERS Safety Report 4673276-3 (Version None)
Quarter: 2005Q2

REPORT INFORMATION
  Report Type: 
  Country: None (occurrence: None)
  Receive Date: 20050523
  Receipt Date: 20050523
  Transmission Date: 20051028
  Serious: Yes (Hospitalization)
  Sender: FDA-Public Use
  Company Number: None

PATIENT
  Age: 72 Year
  Sex: Male
  Weight: 92.4 kg

DRUGS (1)
  1. ATORVASTATIN 20MG TAB [Suspect]
     Indication: HYPERCHOLESTEROLAEMIA
     Dosage: 10MG, DAILY , ORAL
     Route: 048
     Dates: start: 20050204, end: 20050401

REACTIONS (3)
  - CHEST PAIN [None]
  - LETHARGY [None]
  - MYALGIA [None]
